FAERS Safety Report 5199597-6 (Version None)
Quarter: 2007Q1

REPORT INFORMATION
  Report Type: 
  Country: None (occurrence: None)
  Receive Date: 20070103
  Receipt Date: 20070103
  Transmission Date: 20070707
  Serious: No
  Sender: FDA-Public Use
  Company Number: None

PATIENT
  Age: 36 Year
  Sex: Female
  Weight: 58.0604 kg

DRUGS (2)
  1. OXYCODONE AND ACETAMINOPHEN [Suspect]
     Indication: POSTOPERATIVE ANALGESIA
     Dosage: 2 TABLETS  EVERY SIX YEARS  PO;  TWO TABLETS -EACH DAY- ;  ONE TABLET
     Route: 048
     Dates: start: 20061222, end: 20061223
  2. OXYCODONE AND ACETAMINOPHEN [Suspect]
     Indication: POSTOPERATIVE ANALGESIA
     Dosage: 2 TABLETS  EVERY SIX YEARS  PO;  TWO TABLETS -EACH DAY- ;  ONE TABLET
     Route: 048
     Dates: start: 20061226, end: 20061226

REACTIONS (9)
  - ASTHENIA [None]
  - CHEST DISCOMFORT [None]
  - DRUG HYPERSENSITIVITY [None]
  - HALLUCINATION, AUDITORY [None]
  - HEADACHE [None]
  - HYPOAESTHESIA [None]
  - INSOMNIA [None]
  - PARAESTHESIA [None]
  - VERTIGO [None]
